FAERS Safety Report 5290811-5 (Version None)
Quarter: 2007Q2

REPORT INFORMATION
  Report Type: 
  Country: None (occurrence: None)
  Receive Date: 20070409
  Receipt Date: 20070330
  Transmission Date: 20071010
  Serious: Yes (Disabling)
  Sender: FDA-Public Use
  Company Number: GR-ROCHE-491056

PATIENT
  Age: 55 Year
  Sex: Female
  Weight: 64 kg

DRUGS (1)
  1. BONVIVA [Suspect]
     Indication: OSTEOPENIA
     Route: 048
     Dates: start: 20070318, end: 20070318

REACTIONS (9)
  - AXILLARY PAIN [None]
  - BACK PAIN [None]
  - CHEST PAIN [None]
  - MOVEMENT DISORDER [None]
  - NECK PAIN [None]
  - OESOPHAGITIS [None]
  - PAIN IN EXTREMITY [None]
  - STOMACH DISCOMFORT [None]
  - URINARY TRACT PAIN [None]
